FAERS Safety Report 5203865-9 (Version None)
Quarter: 2007Q1

REPORT INFORMATION
  Report Type: 
  Country: None (occurrence: None)
  Receive Date: 20070110
  Receipt Date: 20070104
  Transmission Date: 20070707
  Serious: Yes (Hospitalization)
  Sender: FDA-Public Use
  Company Number: CA-SHR-CA-2006-026069

PATIENT
  Age: 45 Year
  Sex: Female

DRUGS (8)
  1. BETASERON [Suspect]
     Indication: RELAPSING-REMITTING MULTIPLE SCLEROSIS
     Dosage: 8 MIU, EVERY 2D
     Route: 058
     Dates: start: 20010628, end: 20060901
  2. GABAPENTIN [Suspect]
     Dosage: UNK, UNK
     Route: 048
  3. HYDROMORPH CONTIN [Concomitant]
     Route: 048
  4. DILAUDID [Concomitant]
     Route: 048
  5. METFORMIN HCL [Concomitant]
     Route: 048
  6. FUROSEMIDE [Concomitant]
     Route: 048
  7. OXAZEPAM [Concomitant]
     Route: 048
  8. AMITRIPTYLINE HCL [Concomitant]
     Route: 048

REACTIONS (4)
  - DYSPNOEA [None]
  - FALL [None]
  - GENERALISED OEDEMA [None]
  - HEPATIC NEOPLASM [None]
